FAERS Safety Report 12926675 (Version 3)
Quarter: 2017Q1

REPORT INFORMATION
  Report Type: Spontaneous
  Country: US (occurrence: US)
  Receive Date: 20161108
  Receipt Date: 20170109
  Transmission Date: 20170428
  Serious: Yes (Other)
  Sender: FDA-Public Use
  Company Number: US-SA-2016SA201575

PATIENT
  Age: 54 Year
  Sex: Female
  Weight: 52 kg

DRUGS (4)
  1. LOVENOX [Suspect]
     Active Substance: ENOXAPARIN SODIUM
     Indication: PROPHYLAXIS
     Dosage: 15 YEARS AGO
     Route: 065
     Dates: start: 20161204
  2. PAROXETINE. [Concomitant]
     Active Substance: PAROXETINE
     Indication: PANIC ATTACK
     Route: 065
  3. POLY-IRON FORTE [Concomitant]
     Indication: ANAEMIA
     Dosage: 12 YEARS AGO
     Route: 065
  4. LOVENOX [Suspect]
     Active Substance: ENOXAPARIN SODIUM
     Indication: DEEP VEIN THROMBOSIS
     Dosage: 15 YEARS AGO
     Route: 065
     Dates: start: 20161204

REACTIONS (4)
  - Thrombosis [Unknown]
  - Cerebrovascular accident [Unknown]
  - Malaise [Unknown]
  - Drug dependence [Unknown]
